FAERS Safety Report 16678364 (Version 1)
Quarter: 2019Q3

REPORT INFORMATION
  Report Type: Spontaneous
  Country: US (occurrence: US)
  Receive Date: 20190621
  Receipt Date: 20190621
  Transmission Date: 20191004
  Serious: No
  Sender: FDA-Public Use
  Company Number: None

PATIENT
  Age: 96 Year
  Sex: Female

DRUGS (3)
  1. REPATHA [Suspect]
     Active Substance: EVOLOCUMAB
     Indication: TYPE IIA HYPERLIPIDAEMIA
     Dosage: ?          OTHER FREQUENCY: 140MG(1 PEN) EVERY 2 WEEKS S DIRECTED?
     Route: 058
     Dates: start: 201706
  2. REPATHA [Suspect]
     Active Substance: EVOLOCUMAB
     Indication: ARTERIOSCLEROSIS CORONARY ARTERY
     Dosage: ?          OTHER FREQUENCY: 140MG(1 PEN) EVERY 2 WEEKS S DIRECTED?
     Route: 058
     Dates: start: 201706
  3. REPATHA [Suspect]
     Active Substance: EVOLOCUMAB
     Indication: HYPERLIPIDAEMIA
     Dosage: ?          OTHER FREQUENCY: 140MG(1 PEN) EVERY 2 WEEKS S DIRECTED?
     Route: 058
     Dates: start: 201706

REACTIONS (1)
  - Cardiac disorder [None]
